FAERS Safety Report 7138747-9 (Version None)
Quarter: 2010Q4

REPORT INFORMATION
  Report Type: 
  Country: None (occurrence: None)
  Receive Date: 20101201
  Receipt Date: 20101201
  Transmission Date: 20110411
  Serious: Yes (Disabling)
  Sender: FDA-Public Use
  Company Number: None

PATIENT
  Sex: Male

DRUGS (6)
  1. RITUXIMAB (ANTI-CD20) GENETECH [Suspect]
     Indication: MYOCLONUS
     Dosage: 375 MG/M2 1 X 4 WK IV INFUSION
     Route: 042
     Dates: start: 20020408
  2. RITUXIMAB (ANTI-CD20) GENETECH [Suspect]
     Indication: NEUROBLASTOMA
     Dosage: 375 MG/M2 1 X 4 WK IV INFUSION
     Route: 042
     Dates: start: 20020408
  3. SEPTRA [Concomitant]
  4. IMMUNE GLOBULIN INTRAVENOUS (HUMAN) [Concomitant]
  5. MERCAPTOPURINE [Concomitant]
  6. ACTH [Concomitant]

REACTIONS (2)
  - HYPOGAMMAGLOBULINAEMIA [None]
  - LYMPHOPENIA [None]
